FAERS Safety Report 24701537 (Version 2)
Quarter: 2025Q3

REPORT INFORMATION
  Report Type: Report from Study
  Country: US (occurrence: US)
  Receive Date: 20241205
  Receipt Date: 20250809
  Transmission Date: 20251021
  Serious: Yes (Other)
  Sender: ALEXION PHARMACEUTICALS
  Company Number: US-AstraZeneca-202411USA026035US

PATIENT
  Age: 62 Year
  Sex: Female

DRUGS (4)
  1. OLAPARIB [Suspect]
     Active Substance: OLAPARIB
     Indication: Breast cancer metastatic
     Dosage: 150 MILLIGRAM, BID
     Dates: start: 20210309
  2. OLAPARIB [Suspect]
     Active Substance: OLAPARIB
  3. OLAPARIB [Suspect]
     Active Substance: OLAPARIB
  4. OLAPARIB [Suspect]
     Active Substance: OLAPARIB
     Dosage: 250 MILLIGRAM, BID
     Dates: start: 202411

REACTIONS (7)
  - Cardiac failure [Unknown]
  - Neoplasm malignant [Unknown]
  - Bone cancer [Unknown]
  - Respiratory tract infection [Recovered/Resolved]
  - Cough [Not Recovered/Not Resolved]
  - Anaemia [Recovered/Resolved]
  - Red blood cell transfusion [Unknown]

NARRATIVE: CASE EVENT DATE: 20230601
